FAERS Safety Report 24143332 (Version 1)
Quarter: 2024Q3

REPORT INFORMATION
  Report Type: Spontaneous
  Country: FR (occurrence: FR)
  Receive Date: 20240726
  Receipt Date: 20240726
  Transmission Date: 20241016
  Serious: Yes (Hospitalization, Other)
  Sender: MERCK
  Company Number: FR-MERCK-1102FRA00030

PATIENT
  Age: 67 Year
  Sex: Male

DRUGS (15)
  1. EMEND [Interacting]
     Active Substance: APREPITANT
     Indication: Prophylaxis of nausea and vomiting
     Dosage: 125 MG, QD
     Route: 048
     Dates: start: 20100706, end: 20100706
  2. EMEND [Interacting]
     Active Substance: APREPITANT
     Dosage: 80 MG, QD
     Route: 048
     Dates: start: 20100707, end: 20100710
  3. IFOSFAMIDE [Interacting]
     Active Substance: IFOSFAMIDE
     Indication: Neuroendocrine tumour
     Dosage: 3.7 G, QD
     Route: 042
     Dates: start: 20100706, end: 20100708
  4. ADRIAMYCIN [Concomitant]
     Active Substance: DOXORUBICIN HYDROCHLORIDE
     Indication: Neuroendocrine tumour
     Dosage: 55 MG, QD
     Route: 042
     Dates: start: 20100706, end: 20100707
  5. MESNA [Concomitant]
     Active Substance: MESNA
     Dosage: 5 G, QD
     Route: 042
     Dates: start: 20100706, end: 20100709
  6. 4 ON [ONDANSETRON] [Concomitant]
     Dosage: 8 MG, QD
     Route: 042
  7. PRIMPERAN [Concomitant]
     Active Substance: METOCLOPRAMIDE HYDROCHLORIDE
     Dosage: 20 MG, BID
     Route: 042
     Dates: start: 20100706, end: 20100707
  8. SOLU-MEDROL [Concomitant]
     Active Substance: METHYLPREDNISOLONE SODIUM SUCCINATE
     Dosage: 80 MG, QD
     Route: 042
     Dates: start: 20100706, end: 20100709
  9. REPAGLINIDE [Concomitant]
     Active Substance: REPAGLINIDE
  10. NOVORAPID [Concomitant]
     Active Substance: INSULIN ASPART
  11. AG IRBESARTAN [Concomitant]
  12. CALCIUM CARBONATE [Concomitant]
     Active Substance: CALCIUM CARBONATE
  13. VITAMINS [Concomitant]
     Active Substance: VITAMINS
  14. MK-9359 [Concomitant]
  15. HYDROCHLOROTHIAZIDE\IRBESARTAN [Concomitant]
     Active Substance: HYDROCHLOROTHIAZIDE\IRBESARTAN

REACTIONS (2)
  - Encephalopathy [Recovered/Resolved]
  - Drug interaction [Recovered/Resolved]

NARRATIVE: CASE EVENT DATE: 20100708
